FAERS Safety Report 14911197 (Version 1)
Quarter: 2018Q2

REPORT INFORMATION
  Report Type: Spontaneous
  Country: US (occurrence: US)
  Receive Date: 20180518
  Receipt Date: 20180518
  Transmission Date: 20180711
  Serious: Yes (Death, Hospitalization, Other)
  Sender: FDA-Public Use
  Company Number: US-DENTSPLY-2018SCDP000135

PATIENT

DRUGS (1)
  1. LIDOCAINE. [Suspect]
     Active Substance: LIDOCAINE
     Indication: RHINALGIA
     Dosage: 4 %, 120 ML
     Route: 045

REACTIONS (4)
  - Acute respiratory failure [Fatal]
  - Hemiparesis [Unknown]
  - Brain injury [Fatal]
  - Aphasia [Unknown]
